FAERS Safety Report 12080552 (Version 1)
Quarter: 2016Q1

REPORT INFORMATION
  Report Type: Spontaneous
  Country: US (occurrence: None)
  Receive Date: 20160212
  Receipt Date: 20160212
  Transmission Date: 20160526
  Serious: Yes (Life-Threatening)
  Sender: FDA-Public Use
  Company Number: None

PATIENT
  Age: 40 Year
  Sex: Female
  Weight: 95.26 kg

DRUGS (3)
  1. TIZANIDINE. [Suspect]
     Active Substance: TIZANIDINE
     Indication: PRODUCT USED FOR UNKNOWN INDICATION
     Route: 048
     Dates: start: 20150101, end: 20160210
  2. VITAMIN B12 [Concomitant]
     Active Substance: CYANOCOBALAMIN
  3. PHENTERMINE. [Concomitant]
     Active Substance: PHENTERMINE

REACTIONS (17)
  - Feeling drunk [None]
  - Hyporesponsive to stimuli [None]
  - Heart rate increased [None]
  - Drug interaction [None]
  - Dysphagia [None]
  - Photophobia [None]
  - Chest pain [None]
  - Dysarthria [None]
  - Asthenopia [None]
  - Miosis [None]
  - Dizziness [None]
  - Chest discomfort [None]
  - Feeding disorder [None]
  - Dry mouth [None]
  - Feeling abnormal [None]
  - Somnolence [None]
  - Blood pressure decreased [None]

NARRATIVE: CASE EVENT DATE: 20160210
